FAERS Safety Report 9848712 (Version 1)
Quarter: 2014Q1

REPORT INFORMATION
  Report Type: Spontaneous
  Country: US (occurrence: US)
  Receive Date: 20140128
  Receipt Date: 20140128
  Transmission Date: 20141002
  Serious: No
  Sender: FDA-Public Use
  Company Number: US-BAYER-2014-014071

PATIENT
  Age: 76 Year
  Sex: Female
  Weight: 56.24 kg

DRUGS (3)
  1. ALEVE TABLET [Suspect]
     Indication: ARTHRITIS
     Dosage: 2 DF, PRN
     Route: 048
     Dates: start: 20140123
  2. ALEVE TABLET [Suspect]
     Indication: ARTHRITIS
     Dosage: 4 DF, 24 HOURS
     Route: 048
     Dates: start: 20140124, end: 20140124
  3. PREDNISONE [Concomitant]

REACTIONS (3)
  - Drug ineffective [None]
  - Extra dose administered [None]
  - Nausea [Not Recovered/Not Resolved]
